FAERS Safety Report 6367260-1 (Version None)
Quarter: 2009Q3

REPORT INFORMATION
  Report Type: 
  Country: None (occurrence: None)
  Receive Date: 20090921
  Receipt Date: 20090910
  Transmission Date: 20100115
  Serious: Yes (Hospitalization)
  Sender: FDA-Public Use
  Company Number: US-MERCK-0907USA00929

PATIENT
  Age: 73 Year
  Sex: Male

DRUGS (9)
  1. ZETIA [Suspect]
     Indication: BLOOD CHOLESTEROL INCREASED
     Route: 048
     Dates: start: 20090101
  2. SIMVASTATIN [Concomitant]
     Route: 048
  3. LISINOPRIL [Concomitant]
     Route: 065
  4. HYDROCHLOROTHIAZIDE [Concomitant]
     Route: 048
  5. METOPROLOL [Concomitant]
     Route: 065
  6. LEXAPRO [Concomitant]
     Route: 065
  7. NEXIUM [Concomitant]
     Route: 065
  8. ASPIRIN [Concomitant]
     Route: 065
  9. PRIMIDONE [Concomitant]
     Indication: ESSENTIAL TREMOR
     Route: 065

REACTIONS (17)
  - AGITATION [None]
  - ALCOHOL WITHDRAWAL SYNDROME [None]
  - ANAEMIA [None]
  - BUNDLE BRANCH BLOCK LEFT [None]
  - CHOLELITHIASIS [None]
  - DEPRESSION [None]
  - DIASTOLIC DYSFUNCTION [None]
  - DYSPHAGIA [None]
  - FLUID OVERLOAD [None]
  - GASTROOESOPHAGEAL REFLUX DISEASE [None]
  - LEFT ATRIAL DILATATION [None]
  - LEFT VENTRICULAR HYPERTROPHY [None]
  - MUSCULOSKELETAL CHEST PAIN [None]
  - PANCREATITIS [None]
  - PNEUMONIA ASPIRATION [None]
  - RENAL CYST [None]
  - WHITE BLOOD CELL COUNT DECREASED [None]
